FAERS Safety Report 6715667-2 (Version None)
Quarter: 2010Q2

REPORT INFORMATION
  Report Type: 
  Country: None (occurrence: None)
  Receive Date: 20100507
  Receipt Date: 20090323
  Transmission Date: 20101027
  Serious: No
  Sender: FDA-Public Use
  Company Number: A0774827A

PATIENT
  Age: 72 Year
  Sex: Male

DRUGS (2)
  1. DYNACIRC CR [Suspect]
     Indication: HYPERTENSION
     Dosage: 10MG PER DAY
     Route: 048
     Dates: start: 20081001, end: 20090201
  2. DIOVAN [Concomitant]

REACTIONS (1)
  - DRUG INEFFECTIVE [None]
